FAERS Safety Report 9591893 (Version 2)
Quarter: 2013Q4

REPORT INFORMATION
  Report Type: Spontaneous
  Country: US (occurrence: US)
  Receive Date: 20131004
  Receipt Date: 20131004
  Transmission Date: 20140711
  Serious: No
  Sender: FDA-Public Use
  Company Number: US-AMGEN-USASP2012082755

PATIENT
  Age: 38 Year
  Sex: Female

DRUGS (1)
  1. ENBREL [Suspect]
     Indication: PSORIASIS
     Dosage: 50 MG, QWK
     Route: 058
     Dates: start: 20121018

REACTIONS (5)
  - Sinus congestion [Recovering/Resolving]
  - Ear congestion [Recovering/Resolving]
  - Swelling [Recovering/Resolving]
  - Sinusitis [Recovering/Resolving]
  - Injection site pain [Unknown]
